FAERS Safety Report 17902964 (Version 4)
Quarter: 2020Q4

REPORT INFORMATION
  Report Type: Report from Study
  Country: US (occurrence: US)
  Receive Date: 20200616
  Receipt Date: 20201016
  Transmission Date: 20210113
  Serious: Yes (Other)
  Sender: FDA-Public Use
  Company Number: NVSC2020US168177

PATIENT
  Sex: Female

DRUGS (2)
  1. COSENTYX [Suspect]
     Active Substance: SECUKINUMAB
     Indication: PSORIATIC ARTHROPATHY
     Dosage: 150 MG, QW (150 MG ONCE WEEKLY FOR 5 WEEKS (LOADING),THEN ONCE EVERY 4 WEEKS (MAINTENANCE))
     Route: 058
     Dates: start: 20200614
  2. COSENTYX [Suspect]
     Active Substance: SECUKINUMAB
     Dosage: 300 MG, QMO
     Route: 058

REACTIONS (4)
  - Headache [Unknown]
  - Pain [Unknown]
  - Psoriatic arthropathy [Unknown]
  - Therapeutic product effect incomplete [Unknown]
